FAERS Safety Report 26184037 (Version 1)
Quarter: 2025Q4

REPORT INFORMATION
  Report Type: Report from Study
  Country: US (occurrence: US)
  Receive Date: 20251222
  Receipt Date: 20251222
  Transmission Date: 20260117
  Serious: Yes (Other)
  Sender: ALEXION PHARMACEUTICALS
  Company Number: US-ASTRAZENECA-202512NAM010838US

PATIENT
  Age: 38 Year
  Sex: Female

DRUGS (1)
  1. STRENSIQ [Suspect]
     Active Substance: ASFOTASE ALFA
     Indication: Phosphorus metabolism disorder
     Dosage: 2 MILLIGRAM/KILOGRAM, 2 TIMES A WEEK
     Route: 065

REACTIONS (7)
  - Injection site rash [Unknown]
  - Fatigue [Unknown]
  - Swelling [Unknown]
  - Dermatitis [Unknown]
  - Attention deficit hyperactivity disorder [Unknown]
  - Cranial nerve disorder [Unknown]
  - Vitamin D decreased [Unknown]

NARRATIVE: CASE EVENT DATE: 20250612
